FAERS Safety Report 9839199 (Version 2)
Quarter: 2014Q1

REPORT INFORMATION
  Report Type: Spontaneous
  Country: KR (occurrence: KR)
  Receive Date: 20140123
  Receipt Date: 20140218
  Transmission Date: 20141002
  Serious: Yes (Death, Other)
  Sender: FDA-Public Use
  Company Number: KR-JHP PHARMACEUTICALS, LLC-JHP201400008

PATIENT
  Age: 78 Year
  Sex: Male

DRUGS (12)
  1. COLY-MYCIN M PARENTERAL [Suspect]
     Indication: PNEUMONIA
     Dosage: 150 MG, DAILY
     Route: 055
  2. TMP-SMX [Suspect]
  3. RIFAMPICIN [Suspect]
  4. PIPERACILLIN/TAZOBACTAM [Suspect]
  5. IMIPENEM CILASTATIN [Concomitant]
  6. ASPIRIN [Concomitant]
  7. DILTIAZEM [Concomitant]
  8. DIGOXIN [Concomitant]
  9. FUROSEMIDE [Concomitant]
  10. SPIRONOLACTONE [Concomitant]
  11. ERDOSTEINE [Concomitant]
  12. SUCRALFATE [Concomitant]

REACTIONS (3)
  - Clostridium difficile colitis [Fatal]
  - Sepsis [Fatal]
  - Off label use [Unknown]
